FAERS Safety Report 5522322-3 (Version None)
Quarter: 2007Q4

REPORT INFORMATION
  Report Type: 
  Country: None (occurrence: None)
  Receive Date: 20071120
  Receipt Date: 20071116
  Transmission Date: 20080405
  Serious: Yes (Life-Threatening, Other)
  Sender: FDA-Public Use
  Company Number: JP-ASTRAZENECA-2007AP06635

PATIENT
  Age: 1 Year
  Sex: Male
  Weight: 10 kg

DRUGS (7)
  1. MEROPENEM [Suspect]
     Indication: MENINGITIS BACTERIAL
     Route: 042
     Dates: start: 20051212, end: 20051219
  2. DECADRON [Concomitant]
     Indication: MENINGITIS BACTERIAL
     Route: 042
     Dates: start: 20051212, end: 20051214
  3. IMMUNE GLOBULIN INTRAVENOUS (HUMAN) [Concomitant]
     Indication: MENINGITIS BACTERIAL
     Route: 042
     Dates: start: 20051212, end: 20051214
  4. GLYCEOL [Concomitant]
     Indication: MENINGITIS BACTERIAL
     Route: 042
     Dates: start: 20051212, end: 20051215
  5. FUTHAN [Concomitant]
     Indication: DISSEMINATED INTRAVASCULAR COAGULATION
     Route: 042
     Dates: start: 20051212, end: 20051216
  6. GASTER [Concomitant]
     Indication: PEPTIC ULCER
     Route: 042
     Dates: start: 20051212, end: 20051219
  7. ROCEPHIN [Concomitant]
     Indication: MENINGITIS BACTERIAL
     Route: 042
     Dates: start: 20051212, end: 20051226

REACTIONS (3)
  - CONVULSION [None]
  - HEPATIC FUNCTION ABNORMAL [None]
  - RHABDOMYOLYSIS [None]
